FAERS Safety Report 6355563-6 (Version None)
Quarter: 2009Q3

REPORT INFORMATION
  Report Type: 
  Country: None (occurrence: None)
  Receive Date: 20090914
  Receipt Date: 20090903
  Transmission Date: 20100115
  Serious: Yes (Life-Threatening)
  Sender: FDA-Public Use
  Company Number: BH-GENENTECH-289808

PATIENT
  Age: 4 Year
  Weight: 13 kg

DRUGS (1)
  1. MABTHERA [Suspect]
     Indication: LYMPHOPROLIFERATIVE DISORDER
     Dosage: 375 UNK, 1/WEEK
     Route: 065

REACTIONS (3)
  - ANAPHYLACTIC REACTION [None]
  - ANGIOEDEMA [None]
  - BRONCHOSPASM [None]
